FAERS Safety Report 11089814 (Version 2)
Quarter: 2015Q2

REPORT INFORMATION
  Report Type: Spontaneous
  Country: US (occurrence: None)
  Receive Date: 20150501
  Receipt Date: 20150617
  Transmission Date: 20150821
  Serious: Yes (Other)
  Sender: FDA-Public Use
  Company Number: DEP_02704_2015

PATIENT
  Age: 57 Year
  Sex: Female

DRUGS (5)
  1. LAZANDA [Suspect]
     Active Substance: FENTANYL CITRATE
     Indication: BREAKTHROUGH PAIN
     Dosage: ONCE DAILY, AS NEEDED NASAL
     Route: 045
     Dates: start: 2014
  2. LAZANDA [Suspect]
     Active Substance: FENTANYL CITRATE
     Indication: OFF LABEL USE
     Dosage: ONCE DAILY, AS NEEDED NASAL
     Route: 045
     Dates: start: 2014
  3. UNSPECIFIED MEDICATIONS [Suspect]
     Active Substance: UNSPECIFIED INGREDIENT
     Indication: PRODUCT USED FOR UNKNOWN INDICATION
     Dosage: DF
  4. CORTISONE [Suspect]
     Active Substance: CORTISONE\HYDROCORTISONE
     Indication: BACK PAIN
     Dosage: DF
     Route: 008
     Dates: start: 20150408
  5. LAZANDA [Suspect]
     Active Substance: FENTANYL CITRATE
     Indication: BACK PAIN
     Dosage: ONCE DAILY, AS NEEDED NASAL
     Route: 045
     Dates: start: 2014

REACTIONS (5)
  - Migraine [None]
  - Drug ineffective [None]
  - Cerebral haemorrhage [None]
  - Incorrect dose administered [None]
  - Product packaging quantity issue [None]

NARRATIVE: CASE EVENT DATE: 201504
